FAERS Safety Report 21235495 (Version 1)
Quarter: 2022Q3

REPORT INFORMATION
  Report Type: Spontaneous
  Country: US (occurrence: US)
  Receive Date: 20220821
  Receipt Date: 20220821
  Transmission Date: 20221027
  Serious: No
  Sender: FDA-Public Use
  Company Number: US-BRISTOL-MYERS SQUIBB COMPANY-2022-092241

PATIENT
  Age: 74 Year
  Sex: Female
  Weight: 51.71 kg

DRUGS (1)
  1. REVLIMID [Suspect]
     Active Substance: LENALIDOMIDE
     Indication: Mantle cell lymphoma
     Dosage: 3W ON 1W OFF
     Route: 048

REACTIONS (3)
  - White blood cell count decreased [Unknown]
  - Neutrophil count decreased [Unknown]
  - Platelet count decreased [Unknown]
